FAERS Safety Report 5761412-7 (Version None)
Quarter: 2008Q2

REPORT INFORMATION
  Report Type: 
  Country: None (occurrence: None)
  Receive Date: 20080606
  Receipt Date: 20080602
  Transmission Date: 20081010
  Serious: Yes (Hospitalization)
  Sender: FDA-Public Use
  Company Number: SE-JNJFOC-20080601159

PATIENT
  Age: 63 Year
  Sex: Female

DRUGS (2)
  1. IPREN 400 [Suspect]
     Indication: BACK PAIN
     Dosage: TOOK 30 TABLETS (12000 MG) OVER 12 HOURS
     Route: 048
  2. DEXOFEN [Concomitant]
     Indication: PAIN

REACTIONS (3)
  - BLOOD SODIUM ABNORMAL [None]
  - DRUG ABUSE [None]
  - OVERDOSE [None]
